FAERS Safety Report 10400163 (Version 2)
Quarter: 2014Q4

REPORT INFORMATION
  Report Type: Spontaneous
  Country: US (occurrence: US)
  Receive Date: 20140821
  Receipt Date: 20141008
  Transmission Date: 20150528
  Serious: Yes (Hospitalization, Disabling)
  Sender: FDA-Public Use
  Company Number: US-BAYER-2014-125300

PATIENT
  Age: 41 Year
  Sex: Female

DRUGS (1)
  1. MIRENA [Suspect]
     Active Substance: LEVONORGESTREL
     Indication: CONTRACEPTION
     Dosage: 20 MCG/24HR, CONT
     Route: 015
     Dates: start: 20081104, end: 20120918

REACTIONS (6)
  - Injury [None]
  - Procedural pain [None]
  - General physical health deterioration [None]
  - Pain [None]
  - Uterine perforation [None]
  - Therapy cessation [None]

NARRATIVE: CASE EVENT DATE: 201209
